FAERS Safety Report 6708139-2 (Version None)
Quarter: 2010Q2

REPORT INFORMATION
  Report Type: 
  Country: None (occurrence: None)
  Receive Date: 20100503
  Receipt Date: 20090701
  Transmission Date: 20101027
  Serious: No
  Sender: FDA-Public Use
  Company Number: US-ASTRAZENECA-2009UW18531

PATIENT
  Age: 68 Year
  Sex: Female
  Weight: 68 kg

DRUGS (10)
  1. NEXIUM [Suspect]
     Indication: GASTROOESOPHAGEAL REFLUX DISEASE
     Route: 048
  2. AGRONOX [Concomitant]
  3. LISINOPRIL [Concomitant]
  4. LIPITOR [Concomitant]
  5. WARFARIN [Concomitant]
  6. LORATADINE [Concomitant]
  7. RAQ [Concomitant]
  8. LOVAZA [Concomitant]
  9. CALCIUM CITRATE [Concomitant]
  10. D3 [Concomitant]

REACTIONS (1)
  - FOOD ALLERGY [None]
